FAERS Safety Report 8138999 (Version 2)
Quarter: 2012Q4

REPORT INFORMATION
  Report Type: 
  Country: FR (occurrence: FR)
  Receive Date: 20110916
  Receipt Date: 20121001
  Transmission Date: 20130627
  Serious: Yes (Hospitalization)
  Sender: FDA-Public Use
  Company Number: FR-BIOGENIDEC-2011BI034826

PATIENT
  Age: 61 Year
  Sex: Female

DRUGS (2)
  1. TYSABRI [Suspect]
     Indication: MULTIPLE SCLEROSIS
     Route: 042
     Dates: start: 20080615, end: 20110817
  2. PROZAC [Concomitant]
     Indication: DEPRESSION
     Dates: start: 1999, end: 20110817

REACTIONS (1)
  - Bipolar I disorder [Recovered/Resolved]
